FAERS Safety Report 9204621 (Version 2)
Quarter: 2013Q2

REPORT INFORMATION
  Report Type: Spontaneous
  Country: US (occurrence: None)
  Receive Date: 20130329
  Receipt Date: 20130422
  Transmission Date: 20140414
  Serious: Yes (Other)
  Sender: FDA-Public Use
  Company Number: JPI-P-030894

PATIENT
  Age: 51 Year
  Sex: Female
  Weight: 129.28 kg

DRUGS (9)
  1. XYREM [Suspect]
     Indication: CATAPLEXY
     Dosage: 4.5GM (2.25GM, 2 IN 1D), ORAL
     Route: 048
     Dates: start: 20130316, end: 20130321
  2. CLONIDINE [Suspect]
     Indication: PRODUCT USED FOR UNKNOWN INDICATION
     Dosage: (UNKNOWN, 3 IN 1 D), UNKNOWN
  3. CLONAZEPAM [Suspect]
     Indication: SLEEP DISORDER
     Dosage: 2 TABLETS AT BEDTIME + 1-2 DAILY AS NEEDED), ORAL
     Route: 048
     Dates: end: 20130315
  4. CLONAZEPAM [Suspect]
     Indication: ANXIETY
     Dosage: 2 TABLETS AT BEDTIME + 1-2 DAILY AS NEEDED), ORAL
     Route: 048
     Dates: end: 20130315
  5. DRUGS FOR HYPERTENSION [Concomitant]
  6. DRUG FOR CHOLESTEROL [Concomitant]
  7. DRUG FOR DIABETES [Concomitant]
  8. LURASIDONE HCL [Concomitant]
  9. LAMOTRIGINE [Concomitant]

REACTIONS (9)
  - Hypopnoea [None]
  - Nervousness [None]
  - Anxiety [None]
  - Crying [None]
  - Bone pain [None]
  - Pain in extremity [None]
  - Pain in extremity [None]
  - Lacrimation increased [None]
  - Conversion disorder [None]
